FAERS Safety Report 9644802 (Version 1)
Quarter: 2013Q4

REPORT INFORMATION
  Report Type: Spontaneous
  Country: US (occurrence: US)
  Receive Date: 20131025
  Receipt Date: 20131025
  Transmission Date: 20140711
  Serious: No
  Sender: FDA-Public Use
  Company Number: US-PFIZER INC-2013300210

PATIENT
  Age: 55 Year
  Sex: Female

DRUGS (1)
  1. INLYTA [Suspect]
     Indication: RENAL CANCER METASTATIC
     Dosage: 3 MG, 2X/DAY
     Dates: start: 201309

REACTIONS (2)
  - Myalgia [Unknown]
  - Arthralgia [Unknown]
